FAERS Safety Report 14066372 (Version 1)
Quarter: 2017Q4

REPORT INFORMATION
  Report Type: Report from Study
  Country: FR (occurrence: FR)
  Receive Date: 20171009
  Receipt Date: 20171009
  Transmission Date: 20180321
  Serious: Yes (Other)
  Sender: FDA-Public Use
  Company Number: FR-B.I. PHARMACEUTICALS,INC./RIDGEFIELD-2017-BI-043566

PATIENT
  Age: 74 Year
  Sex: Male

DRUGS (2)
  1. OFEV [Suspect]
     Active Substance: NINTEDANIB
     Route: 048
     Dates: end: 201709
  2. OFEV [Suspect]
     Active Substance: NINTEDANIB
     Indication: IDIOPATHIC PULMONARY FIBROSIS
     Route: 048
     Dates: start: 20170718, end: 20170725

REACTIONS (7)
  - Decreased appetite [Recovered/Resolved]
  - Weight decreased [Recovered/Resolved]
  - Fall [Recovered/Resolved]
  - General physical health deterioration [Recovered/Resolved]
  - Asthenia [Recovered/Resolved]
  - Epistaxis [Recovered/Resolved]
  - Cerebral haematoma [Recovered/Resolved]

NARRATIVE: CASE EVENT DATE: 20170718
